FAERS Safety Report 14573015 (Version 1)
Quarter: 2018Q1

REPORT INFORMATION
  Report Type: Spontaneous
  Country: US (occurrence: US)
  Receive Date: 20180223
  Receipt Date: 20180223
  Transmission Date: 20180509
  Serious: No
  Sender: FDA-Public Use
  Company Number: None

PATIENT

DRUGS (1)
  1. NITROGLYCERIN 0.4MG SUBLINGUAL TABLETS [Suspect]
     Active Substance: NITROGLYCERIN
     Route: 060

REACTIONS (2)
  - Dizziness [None]
  - Syncope [None]
